FAERS Safety Report 8808565 (Version 1)
Quarter: 2012Q4

REPORT INFORMATION
  Report Type: 
  Country: CH (occurrence: CH)
  Receive Date: 20120926
  Receipt Date: 20120926
  Transmission Date: 20130627
  Serious: Yes (Other)
  Sender: FDA-Public Use
  Company Number: PHHY2012CH082045

PATIENT
  Age: 62 Year
  Sex: Male
  Weight: 75 kg

DRUGS (11)
  1. SANDIMMUN [Suspect]
     Indication: BONE MARROW TRANSPLANT REJECTION
     Dosage: 100 mg, BID
     Route: 048
     Dates: start: 20120122, end: 20120222
  2. SANDIMMUN [Suspect]
     Dosage: 200 mg, BID
     Route: 048
     Dates: start: 20120213
  3. SANDIMMUN [Suspect]
     Dosage: 75 mg, BID
     Route: 048
  4. VFEND [Suspect]
     Indication: ASPERGILLOSIS
     Dosage: 200 mg, Q6H
     Route: 048
     Dates: start: 20120205, end: 20120706
  5. URSOFALK [Concomitant]
     Dosage: 250 mg, TID
     Route: 048
  6. BELOC ZOK [Concomitant]
     Dosage: 50 mg, BID
     Route: 048
  7. PANTOZOL [Concomitant]
     Dosage: 40 mg, QD
     Route: 048
  8. SAROTEN [Concomitant]
     Dosage: 25 mg, QD
     Route: 048
  9. SUPRADYN [Concomitant]
  10. NOPIL [Concomitant]
     Route: 048
  11. VALTREX [Concomitant]
     Route: 048

REACTIONS (6)
  - Bone pain [Recovered/Resolved]
  - Bone disorder [Recovered/Resolved]
  - Fluoride increased [Unknown]
  - Renal failure [Recovering/Resolving]
  - Aspergilloma [Recovered/Resolved]
  - Drug prescribing error [Recovered/Resolved]
